FAERS Safety Report 14745987 (Version 1)
Quarter: 2018Q2

REPORT INFORMATION
  Report Type: Report from Study
  Country: CA (occurrence: CA)
  Receive Date: 20180411
  Receipt Date: 20180411
  Transmission Date: 20180711
  Serious: Yes (Other)
  Sender: FDA-Public Use
  Company Number: CA-HLSUS-2018-CA-000578

PATIENT
  Age: 56 Year
  Sex: Female

DRUGS (4)
  1. NOZINAN [Concomitant]
     Active Substance: LEVOMEPROMAZINE
  2. CLOZARIL [Suspect]
     Active Substance: CLOZAPINE
     Route: 048
     Dates: start: 20140502, end: 20180405
  3. EFFEXOR [Concomitant]
     Active Substance: VENLAFAXINE HYDROCHLORIDE
  4. RESTORIL [Concomitant]
     Active Substance: TEMAZEPAM

REACTIONS (3)
  - Neutropenia [Unknown]
  - Breast cancer [Unknown]
  - Leukopenia [Unknown]

NARRATIVE: CASE EVENT DATE: 20180405
